FAERS Safety Report 7289274-X (Version None)
Quarter: 2011Q1

REPORT INFORMATION
  Report Type: 
  Country: None (occurrence: None)
  Receive Date: 20110201
  Receipt Date: 20110125
  Transmission Date: 20110831
  Serious: Yes (Death, Hospitalization)
  Sender: FDA-Public Use
  Company Number: WAES 1101DEU00012

PATIENT
  Age: 20 Year
  Sex: Female

DRUGS (8)
  1. PANTOPRAZOLE [Concomitant]
  2. CAP VORINOSTAT [Suspect]
     Indication: SARCOMA METASTATIC
     Dosage: 400 MG/DAILY PO
     Route: 048
     Dates: start: 20101209, end: 20110101
  3. HYDROMORPHONE [Concomitant]
  4. FENTANYL [Concomitant]
  5. AMITRIPTYLINE HYDROCHLORIDE [Concomitant]
  6. DIPYRONE [Concomitant]
  7. HYDROMORPHONE HCL [Concomitant]
  8. ONDANSETRON [Concomitant]

REACTIONS (6)
  - INSOMNIA [None]
  - PULMONARY EMBOLISM [None]
  - PNEUMONIA [None]
  - PAIN [None]
  - NAUSEA [None]
  - RESPIRATORY FAILURE [None]
